FAERS Safety Report 25321426 (Version 4)
Quarter: 2025Q3

REPORT INFORMATION
  Report Type: Spontaneous
  Country: EU (occurrence: EU)
  Receive Date: 20250516
  Receipt Date: 20250810
  Transmission Date: 20251021
  Serious: Yes (Other)
  Sender: ALEXION PHARMACEUTICALS
  Company Number: EU-AstraZeneca-CH-00861412AP

PATIENT
  Age: 55 Year
  Sex: Female

DRUGS (2)
  1. LYNPARZA [Suspect]
     Active Substance: OLAPARIB
     Indication: Ovarian cancer
     Dosage: 150 MILLIGRAM, QID
     Dates: start: 20250220
  2. TAXOL [Concomitant]
     Active Substance: PACLITAXEL
     Route: 065

REACTIONS (16)
  - Neuropathy peripheral [Not Recovered/Not Resolved]
  - Red blood cell count decreased [Unknown]
  - Platelet count decreased [Unknown]
  - White blood cell count decreased [Unknown]
  - Dyspepsia [Unknown]
  - Constipation [Unknown]
  - Fatigue [Unknown]
  - Alopecia [Unknown]
  - Sleep disorder [Unknown]
  - Product taste abnormal [Unknown]
  - Diarrhoea [Unknown]
  - Vomiting [Unknown]
  - Muscle spasms [Unknown]
  - Abdominal pain upper [Unknown]
  - Product supply issue [Unknown]
  - Product odour abnormal [Unknown]

NARRATIVE: CASE EVENT DATE: 20250201
